FAERS Safety Report 20898381 (Version 3)
Quarter: 2023Q1

REPORT INFORMATION
  Report Type: Report from Study
  Country: CA (occurrence: CA)
  Receive Date: 20220531
  Receipt Date: 20230304
  Transmission Date: 20230418
  Serious: Yes (Hospitalization, Other)
  Sender: FDA-Public Use
  Company Number: CA-ABBVIE-22K-028-4416238-00

PATIENT
  Sex: Female

DRUGS (3)
  1. HUMIRA [Suspect]
     Active Substance: ADALIMUMAB
     Indication: Hidradenitis
     Route: 058
     Dates: start: 20220215, end: 2022
  2. HUMIRA [Suspect]
     Active Substance: ADALIMUMAB
     Dosage: ON DOUBLE DOSE INSTEAD OF SINGLES
     Route: 058
  3. HUMIRA [Suspect]
     Active Substance: ADALIMUMAB
     Route: 058

REACTIONS (3)
  - Osteomyelitis [Unknown]
  - Renal impairment [Unknown]
  - Pyoderma gangrenosum [Unknown]

NARRATIVE: CASE EVENT DATE: 20220101
